FAERS Safety Report 4905522-2 (Version None)
Quarter: 2006Q1

REPORT INFORMATION
  Report Type: 
  Country: None (occurrence: None)
  Receive Date: 20060208
  Receipt Date: 20060130
  Transmission Date: 20060701
  Serious: Yes (Disabling, Other)
  Sender: FDA-Public Use
  Company Number: PHFR2006GB00713

PATIENT
  Age: 45 Year
  Sex: Female

DRUGS (3)
  1. PHENOBARBITONE [Concomitant]
     Indication: EPILEPSY
  2. RIVOTRIL [Concomitant]
     Indication: EPILEPSY
  3. CARBAMAZEPINE [Suspect]
     Indication: EPILEPSY

REACTIONS (1)
  - MIGRAINE [None]
